FAERS Safety Report 5306447-3 (Version None)
Quarter: 2007Q2

REPORT INFORMATION
  Report Type: 
  Country: None (occurrence: None)
  Receive Date: 20070419
  Receipt Date: 20070403
  Transmission Date: 20071010
  Serious: Yes (Death)
  Sender: FDA-Public Use
  Company Number: 16260

PATIENT
  Age: 68 Year
  Sex: Female

DRUGS (4)
  1. CYTARABINE [Suspect]
     Indication: ACUTE MYELOID LEUKAEMIA
     Dosage: 35 MG QD SC
     Route: 058
     Dates: start: 20070319, end: 20070327
  2. CEFTAZIDIME [Concomitant]
  3. AMPHOTERICN [Concomitant]
  4. METOCLOPRAMIDE [Concomitant]

REACTIONS (5)
  - AUTOIMMUNE DISORDER [None]
  - HAEMODIALYSIS [None]
  - MULTI-ORGAN FAILURE [None]
  - RENAL FAILURE [None]
  - TOXIC SHOCK SYNDROME [None]
